FAERS Safety Report 6700762-4 (Version None)
Quarter: 2010Q2

REPORT INFORMATION
  Report Type: 
  Country: None (occurrence: None)
  Receive Date: 20100428
  Receipt Date: 20100416
  Transmission Date: 20101027
  Serious: Yes (Hospitalization)
  Sender: FDA-Public Use
  Company Number: US-ALEXION-A201000407

PATIENT
  Sex: Female

DRUGS (7)
  1. SOLIRIS [Suspect]
     Indication: PAROXYSMAL NOCTURNAL HAEMOGLOBINURIA
     Dosage: 600 MG, UNK
     Route: 042
     Dates: start: 20050810, end: 20070501
  2. SOLIRIS [Suspect]
     Dosage: 900 MG, UNK
     Route: 042
     Dates: start: 20070515
  3. FOLATE [Concomitant]
     Dosage: UNK
     Route: 048
  4. MULTI-VITAMINS [Concomitant]
     Dosage: UNK
     Route: 048
  5. ZYRTEC [Concomitant]
     Dosage: UNK
     Route: 048
  6. CALCIUM [Concomitant]
     Dosage: UNK
     Route: 048
  7. MIDOL                              /00095101/ [Concomitant]
     Dosage: UNK
     Route: 027

REACTIONS (2)
  - NEPHROLITHIASIS [None]
  - RENAL HAEMATOMA [None]
